FAERS Safety Report 11256683 (Version 1)
Quarter: 2015Q3

REPORT INFORMATION
  Report Type: Spontaneous
  Country: US (occurrence: US)
  Receive Date: 20150709
  Receipt Date: 20150709
  Transmission Date: 20151125
  Serious: Yes (Other)
  Sender: FDA-Public Use
  Company Number: US-MUNDIPHARMA DS AND PHARMACOVIGILANCE-USA-2014-0115903

PATIENT
  Sex: Male

DRUGS (2)
  1. BUTRANS [Suspect]
     Active Substance: BUPRENORPHINE
     Dosage: 20 MCG/HR, UNK
     Route: 062
     Dates: start: 20140514, end: 20140725
  2. BUTRANS [Suspect]
     Active Substance: BUPRENORPHINE
     Indication: PAIN
     Dosage: 10 MCG/HR, WEEKLY
     Route: 062
     Dates: start: 201405, end: 201405

REACTIONS (12)
  - Drug withdrawal syndrome [Unknown]
  - Application site scar [Unknown]
  - Application site exfoliation [Not Recovered/Not Resolved]
  - Bedridden [Unknown]
  - Application site vesicles [Not Recovered/Not Resolved]
  - Application site rash [Unknown]
  - Application site erythema [Not Recovered/Not Resolved]
  - Drug effect decreased [Recovered/Resolved]
  - Application site irritation [Unknown]
  - Application site burn [Unknown]
  - Drug ineffective [Recovered/Resolved]
  - Application site pruritus [Not Recovered/Not Resolved]
